FAERS Safety Report 9266842 (Version 2)
Quarter: 2013Q2

REPORT INFORMATION
  Report Type: Spontaneous
  Country: KR (occurrence: KR)
  Receive Date: 20130502
  Receipt Date: 20130531
  Transmission Date: 20140414
  Serious: Yes (Other)
  Sender: FDA-Public Use
  Company Number: KR-JNJFOC-20130414416

PATIENT
  Age: 10 Month
  Sex: 0

DRUGS (2)
  1. CHILDREN^S TYLENOL [Suspect]
     Indication: PYREXIA
     Route: 048
     Dates: start: 2012
  2. BRUFEN [Suspect]
     Indication: PYREXIA
     Route: 065
     Dates: start: 2012

REACTIONS (3)
  - Hypothermia [Recovered/Resolved]
  - Exanthema subitum [Recovered/Resolved]
  - Product quality issue [Unknown]
